FAERS Safety Report 7753442-0 (Version None)
Quarter: 2011Q3

REPORT INFORMATION
  Report Type: 
  Country: None (occurrence: None)
  Receive Date: 20110915
  Receipt Date: 20110902
  Transmission Date: 20111222
  Serious: Yes (Other)
  Sender: FDA-Public Use
  Company Number: CA-JNJFOC-20110902359

PATIENT
  Age: 54 Year
  Sex: Male
  Weight: 77.11 kg

DRUGS (1)
  1. EXTRA STRENGTH TYLENOL SINUS DAYTIME [Suspect]
     Indication: SINUS DISORDER
     Route: 048
     Dates: start: 20110101, end: 20110525

REACTIONS (2)
  - DEPENDENCE [None]
  - WITHDRAWAL SYNDROME [None]
